FAERS Safety Report 12521822 (Version 1)
Quarter: 2016Q3

REPORT INFORMATION
  Report Type: Spontaneous
  Country: US (occurrence: US)
  Receive Date: 20160701
  Receipt Date: 20160701
  Transmission Date: 20161109
  Serious: Yes (Other)
  Sender: FDA-Public Use
  Company Number: US-KADMON PHARMACEUTICALS, LLC-KAD201606-002363

PATIENT
  Sex: Female

DRUGS (2)
  1. RIBAVIRIN. [Suspect]
     Active Substance: RIBAVIRIN
     Indication: HEPATITIS C
     Route: 048
  2. INTERFERON [Suspect]
     Active Substance: INTERFERON

REACTIONS (2)
  - Drug ineffective [Unknown]
  - Biopsy liver [Unknown]
